FAERS Safety Report 6697579-6 (Version None)
Quarter: 2010Q2

REPORT INFORMATION
  Report Type: 
  Country: None (occurrence: None)
  Receive Date: 20100426
  Receipt Date: 20090904
  Transmission Date: 20101027
  Serious: Yes (Hospitalization)
  Sender: FDA-Public Use
  Company Number: US-ABBOTT-09P-163-0594154-00

PATIENT
  Sex: Female
  Weight: 49.032 kg

DRUGS (5)
  1. AZMACORT [Suspect]
     Indication: ASTHMA
     Route: 055
     Dates: start: 19910101, end: 20080101
  2. AZMACORT [Suspect]
     Route: 055
     Dates: start: 20090601, end: 20090701
  3. ADVAIR DISKUS 100/50 [Suspect]
     Indication: ASTHMA
     Route: 055
     Dates: start: 20080101, end: 20090601
  4. ADVAIR DISKUS 100/50 [Suspect]
     Route: 055
     Dates: start: 20090701
  5. SALINE WASH [Concomitant]
     Indication: DRUG USE FOR UNKNOWN INDICATION
     Route: 045

REACTIONS (4)
  - ANOSMIA [None]
  - ASTHMA [None]
  - DRUG RESISTANCE [None]
  - PRODUCT QUALITY ISSUE [None]
